FAERS Safety Report 11182543 (Version 2)
Quarter: 2015Q2

REPORT INFORMATION
  Report Type: Spontaneous
  Country: BR (occurrence: BR)
  Receive Date: 20150611
  Receipt Date: 20150618
  Transmission Date: 20150821
  Serious: Yes (Death, Other)
  Sender: FDA-Public Use
  Company Number: BR-PFIZER INC-2015193465

PATIENT
  Age: 68 Year
  Sex: Male
  Weight: 67 kg

DRUGS (6)
  1. LYRICA [Suspect]
     Active Substance: PREGABALIN
     Indication: PAIN IN EXTREMITY
  2. LIPITOR [Suspect]
     Active Substance: ATORVASTATIN CALCIUM
     Indication: BLOOD CHOLESTEROL ABNORMAL
     Dosage: 1 DF, AFTER DINNER
     Route: 048
     Dates: start: 20150218
  3. MERITOR [Concomitant]
     Active Substance: GLIMEPIRIDE\METFORMIN
     Indication: DIABETES MELLITUS
     Dosage: 1 DF, DAILY
     Dates: start: 201502
  4. OLMETEC [Suspect]
     Active Substance: OLMESARTAN MEDOXOMIL
     Indication: DIABETES MELLITUS
     Dosage: 20 MG, DAILY IN THE MORNING
     Route: 048
     Dates: start: 20150316
  5. LYRICA [Suspect]
     Active Substance: PREGABALIN
     Indication: DIABETIC NEUROPATHY
     Dosage: 150 MG, 4X/DAY (EVERY 6 HOURS)
     Route: 048
     Dates: start: 20150214
  6. SOMALGIN CARDIO [Concomitant]
     Active Substance: ASPIRIN\DIHYDROXYALUMINUM AMINOACETATE ANHYDROUS\MAGNESIUM CARBONATE
     Indication: CARDIAC DISORDER
     Dosage: 81 MG, DAILY AFTER LUNCH
     Dates: start: 201503

REACTIONS (5)
  - Cardio-respiratory arrest [Fatal]
  - Diabetes mellitus [Unknown]
  - Cardio-respiratory arrest [Unknown]
  - Arterial occlusive disease [Unknown]
  - Infarction [Unknown]

NARRATIVE: CASE EVENT DATE: 2015
